FAERS Safety Report 9264288 (Version 1)
Quarter: 2013Q2

REPORT INFORMATION
  Report Type: Spontaneous
  Country: US (occurrence: US)
  Receive Date: 20130430
  Receipt Date: 20130430
  Transmission Date: 20140414
  Serious: Yes (Other)
  Sender: FDA-Public Use
  Company Number: US-ASTRAZENECA-2013SE28399

PATIENT
  Age: 69 Year
  Sex: Male
  Weight: 66.7 kg

DRUGS (2)
  1. SYMBICORT [Suspect]
     Indication: CHRONIC OBSTRUCTIVE PULMONARY DISEASE
     Dosage: 160/4.5 MCG, 2 PUFFS TWO TIMES A DAY
     Route: 055
     Dates: start: 2009
  2. PROAIR HFA [Concomitant]
     Indication: INHALATION THERAPY
     Dosage: 8/90 PRN
     Route: 055

REACTIONS (3)
  - Aortic aneurysm [Unknown]
  - Helicobacter infection [Recovered/Resolved]
  - Dizziness [Recovered/Resolved]
